FAERS Safety Report 15640906 (Version 5)
Quarter: 2019Q1

REPORT INFORMATION
  Report Type: Report from Study
  Country: US (occurrence: US)
  Receive Date: 20181120
  Receipt Date: 20190221
  Transmission Date: 20190417
  Serious: Yes (Death, Hospitalization, Other)
  Sender: FDA-Public Use
  Company Number: US-ACTELION-A-US2018-179304

PATIENT
  Age: 74 Year
  Sex: Male
  Weight: 65.76 kg

DRUGS (6)
  1. UPTRAVI [Suspect]
     Active Substance: SELEXIPAG
     Indication: PULMONARY ARTERIAL HYPERTENSION
     Dosage: 800 MCG, BID
     Route: 048
  2. OPSUMIT [Suspect]
     Active Substance: MACITENTAN
     Indication: PULMONARY ARTERIAL HYPERTENSION
     Dosage: 10 MG, QD
     Route: 048
  3. REVATIO [Concomitant]
     Active Substance: SILDENAFIL CITRATE
  4. UPTRAVI [Suspect]
     Active Substance: SELEXIPAG
     Dosage: 1600 MCG, BID
     Route: 048
  5. UPTRAVI [Suspect]
     Active Substance: SELEXIPAG
     Dosage: 1200 MCG, BID
     Route: 048
  6. ELIQUIS [Concomitant]
     Active Substance: APIXABAN

REACTIONS (28)
  - Renal failure [Unknown]
  - Pulmonary arterial hypertension [Unknown]
  - Cough [Unknown]
  - Dry mouth [Unknown]
  - Secretion discharge [Unknown]
  - Constipation [Unknown]
  - Cardiac failure [Unknown]
  - Diarrhoea [Unknown]
  - Dialysis [Unknown]
  - Hypoaesthesia [Unknown]
  - Pain in jaw [Unknown]
  - Anaemia [Unknown]
  - Peripheral swelling [Unknown]
  - Lung disorder [Unknown]
  - Hypotension [Unknown]
  - Unevaluable event [Unknown]
  - Respiratory disorder [Unknown]
  - Syncope [Unknown]
  - Discomfort [Unknown]
  - Asthenia [Unknown]
  - Somnolence [Unknown]
  - Tracheostomy [Unknown]
  - Pain in extremity [Unknown]
  - Increased viscosity of upper respiratory secretion [Unknown]
  - Death [Fatal]
  - Bronchitis [Unknown]
  - Cardiac failure congestive [Unknown]
  - Hypersomnia [Unknown]

NARRATIVE: CASE EVENT DATE: 20190209
